FAERS Safety Report 4551432-2 (Version None)
Quarter: 2005Q1

REPORT INFORMATION
  Report Type: 
  Country: None (occurrence: None)
  Receive Date: 20050107
  Receipt Date: 20041221
  Transmission Date: 20050727
  Serious: Yes (Other)
  Sender: FDA-Public Use
  Company Number: 2004119153

PATIENT
  Sex: Female

DRUGS (26)
  1. BEXTRA [Suspect]
     Indication: ILL-DEFINED DISORDER
     Dosage: (20 MG,)
  2. CELEBREX [Concomitant]
  3. ACETAMINOPHEN [Concomitant]
  4. GABAPENTIN [Concomitant]
  5. PREDNISONE [Concomitant]
  6. ACETAMINOPHEN [Concomitant]
  7. AMITRIPTYLINE HYDROCHLORIDE [Concomitant]
  8. SERTRALINE HCL [Concomitant]
  9. MISOPROSTOL [Concomitant]
  10. LEVOTHYROXINE SODIUM [Concomitant]
  11. ESTRADIOL [Concomitant]
  12. PROGESTERONE (PREGESTERONE) [Concomitant]
  13. CYCLOBENZAPRINE HYDROCHLORIDE [Concomitant]
  14. ORPHENADRINE CITRATE [Concomitant]
  15. CODEINE CONTIN (CODEINE, CODEINE SULFATE) [Concomitant]
  16. OXYCODONE HCL [Concomitant]
  17. FLURAZEPAM HYDROCHLORIDE (FLURAZEPAM HYDROCHLORIDE) [Concomitant]
  18. FLUVOXAMINE MALEATE [Concomitant]
  19. OXYCODONE HYDROCHLORIDE AND ACETAMINOPHEN [Concomitant]
  20. CAPSAICIN (CAPSAICIN) [Concomitant]
  21. QUININE SULFATE (QUININE SULFATE) [Concomitant]
  22. CALCIUM D3 ^STADA^ (CALCIUM, COLECALCIFEROL) [Concomitant]
  23. PANTOPRAZOLE (PANTOPRAZOLE) [Concomitant]
  24. TENORETIC 100 [Concomitant]
  25. ALPRAZOLAM [Concomitant]
  26. SENNA FRUIT (SENNA FRUIT) [Concomitant]

REACTIONS (9)
  - ACTIVITIES OF DAILY LIVING IMPAIRED [None]
  - AGGRESSION [None]
  - BLOOD PRESSURE ABNORMAL [None]
  - DIFFICULTY IN WALKING [None]
  - GENERAL PHYSICAL HEALTH DETERIORATION [None]
  - NAUSEA [None]
  - OEDEMA PERIPHERAL [None]
  - PAIN [None]
  - SUICIDAL IDEATION [None]
